FAERS Safety Report 23457067 (Version 1)
Quarter: 2024Q1

REPORT INFORMATION
  Report Type: Other
  Country: None (occurrence: FI)
  Receive Date: 20240130
  Receipt Date: 20240130
  Transmission Date: 20240409
  Serious: Yes (Death)
  Sender: FDA-Public Use
  Company Number: FI-B.Braun Medical Inc.-2152306

PATIENT

DRUGS (2)
  1. CEFUROXIME SODIUM [Suspect]
     Active Substance: CEFUROXIME SODIUM
  2. FUROSEMIDE [Suspect]
     Active Substance: FUROSEMIDE

REACTIONS (2)
  - Acute kidney injury [None]
  - Drug interaction [None]
